FAERS Safety Report 5118995-X (Version None)
Quarter: 2006Q3

REPORT INFORMATION
  Report Type: 
  Country: None (occurrence: None)
  Receive Date: 20060927
  Receipt Date: 20060919
  Transmission Date: 20061208
  Serious: Yes (Hospitalization, Other)
  Sender: FDA-Public Use
  Company Number: DE-2006-026302

PATIENT
  Age: 45 Year
  Sex: Female

DRUGS (2)
  1. MIRENA [Suspect]
     Indication: CONTRACEPTION
     Dosage: 20 UG/DAY, CONT, INTRA-UTERINE
     Route: 015
     Dates: start: 20040816, end: 20060906
  2. NO CONCOMITANT MEDICATION [Concomitant]

REACTIONS (3)
  - FOCAL NODULAR HYPERPLASIA [None]
  - HAEMANGIOMA OF LIVER [None]
  - HEPATIC ADENOMA [None]
